FAERS Safety Report 8803948 (Version 1)
Quarter: 2012Q4

REPORT INFORMATION
  Report Type: 
  Country: FR (occurrence: FR)
  Receive Date: 20120923
  Receipt Date: 20120923
  Transmission Date: 20130627
  Serious: Yes (Hospitalization)
  Sender: FDA-Public Use
  Company Number: FR-ABBOTT-12P-056-0970058-00

PATIENT
  Age: 93 Year
  Sex: Female

DRUGS (7)
  1. SEROPLEX [Suspect]
     Indication: DEPRESSION
     Route: 048
     Dates: end: 20120405
  2. ALTIZIDE W/SPIRONOLACTONE [Interacting]
     Indication: HYPERTENSION
     Route: 048
     Dates: end: 20120405
  3. CORDARONE [Concomitant]
     Indication: ARRHYTHMIA
     Route: 048
  4. LEVOTHYROX [Concomitant]
     Indication: HYPOTHYROIDISM
     Route: 048
  5. VITAMIN B12 [Concomitant]
     Indication: PRODUCT USED FOR UNKNOWN INDICATION
     Route: 048
  6. STEROGYL [Concomitant]
     Indication: PRODUCT USED FOR UNKNOWN INDICATION
  7. LERCAN [Concomitant]
     Indication: PRODUCT USED FOR UNKNOWN INDICATION

REACTIONS (8)
  - Drug interaction [Recovered/Resolved]
  - Hyponatraemia [Recovered/Resolved]
  - Dehydration [None]
  - Dyspnoea [None]
  - Vomiting [None]
  - Decreased appetite [None]
  - Renal failure [None]
  - General physical health deterioration [None]
